FAERS Safety Report 9245982 (Version 1)
Quarter: 2013Q2

REPORT INFORMATION
  Report Type: Spontaneous
  Country: US (occurrence: US)
  Receive Date: 20130422
  Receipt Date: 20130422
  Transmission Date: 20140414
  Serious: Yes (Other)
  Sender: FDA-Public Use
  Company Number: US-ASTRAZENECA-2013SE23960

PATIENT
  Sex: Male

DRUGS (1)
  1. ENTOCORT EC [Suspect]
     Indication: CROHN^S DISEASE
     Route: 048

REACTIONS (2)
  - Crohn^s disease [Unknown]
  - Drug ineffective [Unknown]
